FAERS Safety Report 11685012 (Version 7)
Quarter: 2019Q4

REPORT INFORMATION
  Report Type: Report from Study
  Country: US (occurrence: US)
  Receive Date: 20151030
  Receipt Date: 20191105
  Transmission Date: 20200122
  Serious: Yes (Other)
  Sender: FDA-Public Use
  Company Number: PHHY2015US097022

PATIENT
  Age: 44 Year
  Sex: Female

DRUGS (1)
  1. GILENYA [Suspect]
     Active Substance: FINGOLIMOD HYDROCHLORIDE
     Indication: MULTIPLE SCLEROSIS
     Dosage: UNK, QD
     Route: 048

REACTIONS (24)
  - Tremor [Unknown]
  - Ear pain [Unknown]
  - Asthenia [Unknown]
  - Insomnia [Unknown]
  - Multiple sclerosis relapse [Unknown]
  - Balance disorder [Unknown]
  - Headache [Unknown]
  - Tinnitus [Unknown]
  - Dyskinesia [Unknown]
  - Lacrimation increased [Unknown]
  - Spinal column injury [Recovered/Resolved]
  - Micturition urgency [Unknown]
  - Band sensation [Unknown]
  - Dysphagia [Unknown]
  - Neck pain [Unknown]
  - Lymphocyte count decreased [Unknown]
  - Paraesthesia [Unknown]
  - Nocturia [Unknown]
  - Constipation [Unknown]
  - Epicondylitis [Recovered/Resolved]
  - Fatigue [Unknown]
  - Facial paralysis [Unknown]
  - Pain in extremity [Unknown]
  - Urinary incontinence [Unknown]

NARRATIVE: CASE EVENT DATE: 20150610
